FAERS Safety Report 5353949-X (Version None)
Quarter: 2007Q2

REPORT INFORMATION
  Report Type: 
  Country: None (occurrence: None)
  Receive Date: 20070608
  Receipt Date: 20070608
  Transmission Date: 20071010
  Serious: Yes (Hospitalization)
  Sender: FDA-Public Use
  Company Number: None

PATIENT
  Age: 32 Year
  Sex: Male
  Weight: 83.9154 kg

DRUGS (4)
  1. ZOLOFT [Suspect]
     Indication: DEPRESSION
     Dosage: DON''T KNOW ONCE DAILY PO
     Route: 048
     Dates: start: 20031115, end: 20031220
  2. RISPERDAL [Suspect]
     Indication: BIPOLAR DISORDER
     Dosage: DON''T KNOW DAILY PO
     Route: 048
     Dates: start: 20040211, end: 20040915
  3. RISPERDAL [Suspect]
     Indication: SCHIZOPHRENIA
     Dosage: DON''T KNOW DAILY PO
     Route: 048
     Dates: start: 20040211, end: 20040915
  4. ABILIFY [Concomitant]

REACTIONS (9)
  - ABNORMAL BEHAVIOUR [None]
  - AGGRESSION [None]
  - BIPOLAR DISORDER [None]
  - CIRCADIAN RHYTHM SLEEP DISORDER [None]
  - ECONOMIC PROBLEM [None]
  - IMPRISONMENT [None]
  - MANIA [None]
  - PSYCHOTIC DISORDER [None]
  - SCHIZOPHRENIA [None]
